FAERS Safety Report 8936927 (Version 1)
Quarter: 2012Q4

REPORT INFORMATION
  Report Type: 
  Country: GB (occurrence: GB)
  Receive Date: 20121130
  Receipt Date: 20121130
  Transmission Date: 20130627
  Serious: Yes (Other)
  Sender: FDA-Public Use
  Company Number: PHHY2012GB071556

PATIENT
  Sex: Male

DRUGS (4)
  1. VENLAFAXINE [Suspect]
     Dosage: 75 mg, UNK
     Dates: start: 201203
  2. VENLAFAXINE [Suspect]
     Dosage: 75 mg, UNK
     Dates: start: 201208
  3. LYRICA [Concomitant]
     Indication: ALCOHOL POISONING
  4. DIAZEPAM [Concomitant]

REACTIONS (4)
  - Paranoia [Recovered/Resolved]
  - Suicide attempt [Recovered/Resolved]
  - Sleep disorder [Recovered/Resolved]
  - Intentional overdose [Recovered/Resolved]
